FAERS Safety Report 10041121 (Version 3)
Quarter: 2014Q2

REPORT INFORMATION
  Report Type: Spontaneous
  Country: IE (occurrence: IE)
  Receive Date: 20140327
  Receipt Date: 20140627
  Transmission Date: 20141212
  Serious: Yes (Other)
  Sender: FDA-Public Use
  Company Number: PHFR2014IE002328

PATIENT
  Age: 69 Year
  Sex: Female
  Weight: 107.8 kg

DRUGS (11)
  1. CLOZARIL [Suspect]
     Indication: SCHIZOPHRENIA
     Dosage: UNK
     Route: 048
     Dates: start: 20101207
  2. CLOZARIL [Suspect]
     Dosage: 225 MG, QD
     Route: 048
  3. ARIPIPRAZOLE [Concomitant]
     Dosage: 30 MG, QD
  4. DULOXETINE [Concomitant]
     Dosage: 90 MG, QD
  5. SERETIDE DISKUS [Concomitant]
     Dosage: 500 MG, BID
  6. AMISULPRIDE [Concomitant]
     Dosage: 400 MG, BID
  7. ROSUVASTATIN [Concomitant]
     Dosage: UKN, QD
  8. FERROUS FUMARATE [Concomitant]
     Dosage: 305 MG, DAILY
  9. TIOTROPIUM BROMIDE [Concomitant]
     Dosage: 18 UG, DAILY
  10. LOSEC//OMEPRAZOLE [Concomitant]
     Dosage: 40 MG, QD
  11. ANASTROZOLE [Concomitant]
     Dosage: 1 MG, QD
     Route: 048

REACTIONS (2)
  - Tubular breast carcinoma [Recovered/Resolved with Sequelae]
  - Metastases to lymph nodes [Unknown]
